FAERS Safety Report 6000106-X (Version None)
Quarter: 2008Q4

REPORT INFORMATION
  Report Type: 
  Country: None (occurrence: None)
  Receive Date: 20081211
  Receipt Date: 20081211
  Transmission Date: 20090506
  Serious: Yes (Life-Threatening, Disabling)
  Sender: FDA-Public Use
  Company Number: None

PATIENT
  Age: 71 Year
  Sex: Female
  Weight: 110.2241 kg

DRUGS (2)
  1. CARVEDILOL [Suspect]
     Indication: ATRIAL FIBRILLATION
     Dosage: 12MG THEN 6.25MG A DAY PO
     Route: 048
     Dates: start: 20080402, end: 20080423
  2. CARVEDILOL [Suspect]
     Indication: HYPERTENSION
     Dosage: 12MG THEN 6.25MG A DAY PO
     Route: 048
     Dates: start: 20080402, end: 20080423

REACTIONS (8)
  - BLOOD PRESSURE INCREASED [None]
  - DIZZINESS [None]
  - DRUG INTOLERANCE [None]
  - FATIGUE [None]
  - HYPERHIDROSIS [None]
  - NONSPECIFIC REACTION [None]
  - PALPITATIONS [None]
  - PRODUCT QUALITY ISSUE [None]
